FAERS Safety Report 4875576-0 (Version None)
Quarter: 2006Q1

REPORT INFORMATION
  Report Type: 
  Country: None (occurrence: None)
  Receive Date: 20060109
  Receipt Date: 20051114
  Transmission Date: 20060701
  Serious: Yes (Hospitalization)
  Sender: FDA-Public Use
  Company Number: FR-ROCHE-424766

PATIENT
  Age: 83 Year
  Sex: Female
  Weight: 100 kg

DRUGS (10)
  1. ROCEPHIN [Suspect]
     Indication: DRUG USE FOR UNKNOWN INDICATION
     Route: 042
     Dates: start: 20051001, end: 20051005
  2. ROCEPHIN [Suspect]
     Route: 042
  3. OFLOCET [Suspect]
     Indication: DRUG USE FOR UNKNOWN INDICATION
     Route: 042
     Dates: start: 20050930, end: 20051001
  4. OFLOCET [Suspect]
     Route: 042
  5. AUGMENTIN '125' [Suspect]
     Indication: DRUG USE FOR UNKNOWN INDICATION
     Route: 042
     Dates: start: 20050930, end: 20051001
  6. AUGMENTIN '125' [Suspect]
     Route: 042
  7. SOLU-MEDROL [Concomitant]
     Route: 042
     Dates: start: 20050930, end: 20051004
  8. PARIET [Concomitant]
     Route: 048
     Dates: start: 20050502, end: 20051006
  9. PRIMALAN [Concomitant]
     Dates: start: 20050218, end: 20050930
  10. DIALGIREX [Concomitant]
     Dates: start: 20050218, end: 20050930

REACTIONS (8)
  - CHEILITIS [None]
  - DERMATITIS BULLOUS [None]
  - ERYTHEMA MULTIFORME [None]
  - GENITAL DISORDER FEMALE [None]
  - GLOSSITIS [None]
  - ORAL MUCOSAL DISORDER [None]
  - PYREXIA [None]
  - STEVENS-JOHNSON SYNDROME [None]
